FAERS Safety Report 5715472-X (Version None)
Quarter: 2008Q2

REPORT INFORMATION
  Report Type: 
  Country: None (occurrence: None)
  Receive Date: 20080422
  Receipt Date: 20080411
  Transmission Date: 20081010
  Serious: Yes (Life-Threatening, Hospitalization)
  Sender: FDA-Public Use
  Company Number: 163-21880-08010445

PATIENT
  Sex: Female

DRUGS (2)
  1. REVLIMID [Suspect]
     Indication: MULTIPLE MYELOMA
     Dosage: 25 MG, X 21 DAYS, ORAL; 15 MG, X 21 DAYS, ORAL
     Route: 048
     Dates: start: 20071212, end: 20080101
  2. REVLIMID [Suspect]
     Indication: MULTIPLE MYELOMA
     Dosage: 25 MG, X 21 DAYS, ORAL; 15 MG, X 21 DAYS, ORAL
     Route: 048
     Dates: start: 20080109, end: 20080201

REACTIONS (2)
  - ANAEMIA [None]
  - THROMBOCYTOPENIA [None]
